FAERS Safety Report 5764265-6 (Version None)
Quarter: 2008Q2

REPORT INFORMATION
  Report Type: 
  Country: None (occurrence: None)
  Receive Date: 20080605
  Receipt Date: 20080522
  Transmission Date: 20081010
  Serious: No
  Sender: FDA-Public Use
  Company Number: US023605

PATIENT
  Age: 53 Year
  Sex: Male
  Weight: 87.5442 kg

DRUGS (8)
  1. FENTORA [Suspect]
     Indication: PAIN
     Dosage: 400 UG TAKES 1/2 TABLET PRN BUCCAL
     Route: 002
     Dates: start: 20080508
  2. DILAUDID [Concomitant]
  3. PREVACID [Concomitant]
  4. CARAFATE [Concomitant]
  5. ZOLOFT [Concomitant]
  6. TRICOR /00499301/ [Concomitant]
  7. TRAZODONE HCL [Concomitant]
  8. AMBIEN [Concomitant]

REACTIONS (3)
  - DRUG PRESCRIBING ERROR [None]
  - INTENTIONAL DRUG MISUSE [None]
  - PRURITUS [None]
